FAERS Safety Report 19910136 (Version 1)
Quarter: 2021Q4

REPORT INFORMATION
  Report Type: Spontaneous
  Country: CN (occurrence: CN)
  Receive Date: 20211003
  Receipt Date: 20211003
  Transmission Date: 20220303
  Serious: Yes (Hospitalization)
  Sender: FDA-Public Use
  Company Number: CN-BAXTER-2021BAX030839

PATIENT
  Age: 4 Year
  Sex: Male
  Weight: 13.5 kg

DRUGS (3)
  1. CYCLOPHOSPHAMIDE [Suspect]
     Active Substance: CYCLOPHOSPHAMIDE
     Indication: Renal cancer
     Route: 041
     Dates: start: 20210820, end: 20210820
  2. MESNA [Suspect]
     Active Substance: MESNA
     Indication: Prophylaxis
     Route: 065
     Dates: start: 20210820
  3. VINCRISTINE SULFATE [Suspect]
     Active Substance: VINCRISTINE SULFATE
     Indication: Renal cancer
     Route: 041
     Dates: start: 20210820, end: 20210820

REACTIONS (1)
  - Myelosuppression [Recovering/Resolving]

NARRATIVE: CASE EVENT DATE: 20210827
